FAERS Safety Report 25304721 (Version 1)
Quarter: 2025Q2

REPORT INFORMATION
  Report Type: Spontaneous
  Country: PL (occurrence: PL)
  Receive Date: 20250513
  Receipt Date: 20250513
  Transmission Date: 20250716
  Serious: Yes (Other)
  Sender: MYLAN
  Company Number: PL-MYLANLABS-2025M1039116

PATIENT
  Age: 36 Year
  Sex: Female

DRUGS (52)
  1. SERTRALINE [Suspect]
     Active Substance: SERTRALINE HYDROCHLORIDE
     Indication: Depression
  2. SERTRALINE [Suspect]
     Active Substance: SERTRALINE HYDROCHLORIDE
     Route: 065
  3. SERTRALINE [Suspect]
     Active Substance: SERTRALINE HYDROCHLORIDE
     Route: 065
  4. SERTRALINE [Suspect]
     Active Substance: SERTRALINE HYDROCHLORIDE
  5. LAMOTRIGINE [Suspect]
     Active Substance: LAMOTRIGINE
     Indication: Depression
  6. LAMOTRIGINE [Suspect]
     Active Substance: LAMOTRIGINE
     Route: 065
  7. LAMOTRIGINE [Suspect]
     Active Substance: LAMOTRIGINE
     Route: 065
  8. LAMOTRIGINE [Suspect]
     Active Substance: LAMOTRIGINE
  9. QUETIAPINE [Suspect]
     Active Substance: QUETIAPINE
     Indication: Insomnia
  10. QUETIAPINE [Suspect]
     Active Substance: QUETIAPINE
     Route: 065
  11. QUETIAPINE [Suspect]
     Active Substance: QUETIAPINE
     Route: 065
  12. QUETIAPINE [Suspect]
     Active Substance: QUETIAPINE
  13. MIRTAZAPINE [Suspect]
     Active Substance: MIRTAZAPINE
     Indication: Insomnia
     Dosage: 15 MILLIGRAM, QD
  14. MIRTAZAPINE [Suspect]
     Active Substance: MIRTAZAPINE
     Dosage: 15 MILLIGRAM, QD
     Route: 048
  15. MIRTAZAPINE [Suspect]
     Active Substance: MIRTAZAPINE
     Dosage: 15 MILLIGRAM, QD
     Route: 048
  16. MIRTAZAPINE [Suspect]
     Active Substance: MIRTAZAPINE
     Dosage: 15 MILLIGRAM, QD
  17. FLUOXETINE [Suspect]
     Active Substance: FLUOXETINE HYDROCHLORIDE
     Indication: Depression
  18. FLUOXETINE [Suspect]
     Active Substance: FLUOXETINE HYDROCHLORIDE
     Route: 065
  19. FLUOXETINE [Suspect]
     Active Substance: FLUOXETINE HYDROCHLORIDE
     Route: 065
  20. FLUOXETINE [Suspect]
     Active Substance: FLUOXETINE HYDROCHLORIDE
  21. TRAZODONE [Suspect]
     Active Substance: TRAZODONE HYDROCHLORIDE
     Indication: Depression
  22. TRAZODONE [Suspect]
     Active Substance: TRAZODONE HYDROCHLORIDE
     Route: 065
  23. TRAZODONE [Suspect]
     Active Substance: TRAZODONE HYDROCHLORIDE
     Route: 065
  24. TRAZODONE [Suspect]
     Active Substance: TRAZODONE HYDROCHLORIDE
  25. INFLIXIMAB [Concomitant]
     Active Substance: INFLIXIMAB
     Indication: Crohn^s disease
  26. INFLIXIMAB [Concomitant]
     Active Substance: INFLIXIMAB
     Route: 065
  27. INFLIXIMAB [Concomitant]
     Active Substance: INFLIXIMAB
     Route: 065
  28. INFLIXIMAB [Concomitant]
     Active Substance: INFLIXIMAB
  29. VALPROIC ACID [Concomitant]
     Active Substance: VALPROIC ACID
     Indication: Depression
  30. VALPROIC ACID [Concomitant]
     Active Substance: VALPROIC ACID
     Route: 065
  31. VALPROIC ACID [Concomitant]
     Active Substance: VALPROIC ACID
     Route: 065
  32. VALPROIC ACID [Concomitant]
     Active Substance: VALPROIC ACID
  33. CHLORPROTHIXENE [Concomitant]
     Active Substance: CHLORPROTHIXENE
     Indication: Insomnia
  34. CHLORPROTHIXENE [Concomitant]
     Active Substance: CHLORPROTHIXENE
     Route: 065
  35. CHLORPROTHIXENE [Concomitant]
     Active Substance: CHLORPROTHIXENE
     Route: 065
  36. CHLORPROTHIXENE [Concomitant]
     Active Substance: CHLORPROTHIXENE
  37. BUPROPION [Concomitant]
     Active Substance: BUPROPION
     Indication: Depression
  38. BUPROPION [Concomitant]
     Active Substance: BUPROPION
  39. BUPROPION [Concomitant]
     Active Substance: BUPROPION
     Route: 065
  40. BUPROPION [Concomitant]
     Active Substance: BUPROPION
     Route: 065
  41. BUPROPION [Concomitant]
     Active Substance: BUPROPION
  42. BUPROPION [Concomitant]
     Active Substance: BUPROPION
  43. BUPROPION [Concomitant]
     Active Substance: BUPROPION
     Route: 065
  44. BUPROPION [Concomitant]
     Active Substance: BUPROPION
     Route: 065
  45. VEDOLIZUMAB [Concomitant]
     Active Substance: VEDOLIZUMAB
     Indication: Crohn^s disease
  46. VEDOLIZUMAB [Concomitant]
     Active Substance: VEDOLIZUMAB
     Route: 065
  47. VEDOLIZUMAB [Concomitant]
     Active Substance: VEDOLIZUMAB
     Route: 065
  48. VEDOLIZUMAB [Concomitant]
     Active Substance: VEDOLIZUMAB
  49. Iprazochrome [Concomitant]
     Indication: Migraine
  50. Iprazochrome [Concomitant]
     Route: 065
  51. Iprazochrome [Concomitant]
     Route: 065
  52. Iprazochrome [Concomitant]

REACTIONS (5)
  - Therapy non-responder [Unknown]
  - Diarrhoea [Unknown]
  - Abdominal pain [Unknown]
  - Drug intolerance [Unknown]
  - Off label use [Unknown]
